FAERS Safety Report 6752720-1 (Version None)
Quarter: 2010Q2

REPORT INFORMATION
  Report Type: 
  Country: None (occurrence: None)
  Receive Date: 20100528
  Receipt Date: 20100520
  Transmission Date: 20101027
  Serious: Yes (Hospitalization)
  Sender: FDA-Public Use
  Company Number: 2010SP001470

PATIENT
  Age: 41 Year
  Sex: Female
  Weight: 88.4514 kg

DRUGS (12)
  1. CICLESONIDE HFA [Suspect]
     Indication: RHINITIS PERENNIAL
     Dosage: BID; NASAL; BID; NASAL
     Route: 045
     Dates: start: 20100410, end: 20100506
  2. CICLESONIDE HFA [Suspect]
     Indication: RHINITIS PERENNIAL
     Dosage: BID; NASAL; BID; NASAL
     Route: 045
     Dates: start: 20100516
  3. ALBUTEROL /00139501/ (CON.) [Concomitant]
  4. WELLBUTRIN /00700501/ (CON.) [Concomitant]
  5. CELEXA /00582602/ (CON.) [Concomitant]
  6. PRENATAL VITAMINS /01549301/  (CON.) [Concomitant]
  7. LISINOPRIL (CON.) [Concomitant]
  8. HYDROCHLOROTHIAZIDE (CON.) [Concomitant]
  9. BENADRYL /00000402/ (PREV.) [Concomitant]
  10. TYLENOL PM /01088101/ (PREV.) [Concomitant]
  11. MOTRIN (PREV.) [Concomitant]
  12. HYDROCORTISONE /00028604/ (PREV.) [Concomitant]

REACTIONS (1)
  - ACCIDENTAL OVERDOSE [None]
